FAERS Safety Report 5015317-X (Version None)
Quarter: 2006Q2

REPORT INFORMATION
  Report Type: 
  Country: None (occurrence: None)
  Receive Date: 20060601
  Receipt Date: 20060519
  Transmission Date: 20061013
  Serious: Yes (Death)
  Sender: FDA-Public Use
  Company Number: JP-SANOFI-SYNTHELABO-A01200604081

PATIENT
  Age: 75 Year
  Sex: Female

DRUGS (3)
  1. FLUOROURACIL [Suspect]
     Dosage: 302.6MG/M2 IN BOLUS THEN 524MG/M2 AS CONTINUOUS INFUSION ON DAYS 1 AND 2
     Route: 042
     Dates: start: 20060311, end: 20060312
  2. ISOVORIN [Suspect]
     Dosage: 100.8 MG/M2 ON DAYS 1 AND 2
     Route: 042
     Dates: start: 20060311, end: 20060312
  3. OXALIPLATIN [Suspect]
     Indication: RECTAL CANCER
     Dosage: 64.5 MG/M2 ON DA 1
     Route: 042
     Dates: start: 20060311, end: 20060311

REACTIONS (4)
  - LEUKOPENIA [None]
  - NEUTROPENIA [None]
  - PNEUMONIA [None]
  - SEPSIS [None]
